APPROVED DRUG PRODUCT: HYDRO-RIDE
Active Ingredient: AMILORIDE HYDROCHLORIDE; HYDROCHLOROTHIAZIDE
Strength: EQ 5MG ANHYDROUS;50MG
Dosage Form/Route: TABLET;ORAL
Application: A070347 | Product #001
Applicant: PAR PHARMACEUTICAL INC
Approved: Dec 25, 1990 | RLD: No | RS: No | Type: DISCN